FAERS Safety Report 18041497 (Version 4)
Quarter: 2020Q3

REPORT INFORMATION
  Report Type: Report from Study
  Country: None (occurrence: GB)
  Receive Date: 20200719
  Receipt Date: 20200818
  Transmission Date: 20201103
  Serious: Yes (Death, Hospitalization, Other)
  Sender: FDA-Public Use
  Company Number: GB-ABBVIE-20K-167-3486358-00

PATIENT
  Age: 77 Year
  Sex: Male

DRUGS (2)
  1. DUODOPA [Suspect]
     Active Substance: CARBIDOPA\LEVODOPA
     Route: 050
     Dates: start: 2020, end: 2020
  2. DUODOPA [Suspect]
     Active Substance: CARBIDOPA\LEVODOPA
     Indication: PARKINSON^S DISEASE
     Dosage: 100 ML CASSETTE DAILY 5MG/1ML 20MG/1ML?AS DIRECTED
     Route: 050
     Dates: end: 2020

REACTIONS (8)
  - Urinary tract infection [Fatal]
  - Thrombosis [Unknown]
  - Decreased appetite [Unknown]
  - Dementia [Fatal]
  - Prostate cancer [Fatal]
  - Gait inability [Unknown]
  - Bradykinesia [Unknown]
  - Device occlusion [Recovered/Resolved]

NARRATIVE: CASE EVENT DATE: 2020
